FAERS Safety Report 23179165 (Version 1)
Quarter: 2023Q4

REPORT INFORMATION
  Report Type: Spontaneous
  Country: US (occurrence: US)
  Receive Date: 20231113
  Receipt Date: 20231113
  Transmission Date: 20240110
  Serious: Yes (Other)
  Sender: FDA-Public Use
  Company Number: US-ELI_LILLY_AND_COMPANY-US202311003563

PATIENT
  Sex: Female

DRUGS (2)
  1. RETEVMO [Suspect]
     Active Substance: SELPERCATINIB
     Indication: Non-small cell lung cancer
     Dosage: UNK UNK, UNKNOWN
     Route: 065
     Dates: start: 2021
  2. RETEVMO [Suspect]
     Active Substance: SELPERCATINIB
     Dosage: UNK UNK, UNKNOWN
     Route: 065

REACTIONS (2)
  - Pleural effusion [Unknown]
  - Chylothorax [Unknown]
